FAERS Safety Report 7605183-8 (Version None)
Quarter: 2011Q3

REPORT INFORMATION
  Report Type: 
  Country: None (occurrence: None)
  Receive Date: 20110705
  Receipt Date: 20110620
  Transmission Date: 20111222
  Serious: Yes (Other)
  Sender: FDA-Public Use
  Company Number: 2011MA008016

PATIENT
  Age: 44 Year
  Sex: Male

DRUGS (6)
  1. RISPERIDONE [Suspect]
  2. HYOSCINE HBR HYT [Suspect]
     Indication: PRODUCT USED FOR UNKNOWN INDICATION
     Dosage: 10 MG, OD, PO
     Route: 048
  3. HYOSCINE HYDROBROMIDE [Concomitant]
  4. SERTRALINE HYDROCHLORIDE [Concomitant]
  5. CLOZARIL [Suspect]
     Indication: SCHIZOPHRENIA
     Dosage: 400 MG, OD PO
     Route: 048
     Dates: start: 20100809, end: 20110520
  6. FERROUS SULFATE TAB [Concomitant]

REACTIONS (2)
  - WHITE BLOOD CELL COUNT INCREASED [None]
  - NEUTROPENIA [None]
